FAERS Safety Report 20750990 (Version 1)
Quarter: 2022Q2

REPORT INFORMATION
  Report Type: Spontaneous
  Country: US (occurrence: None)
  Receive Date: 20220426
  Receipt Date: 20220426
  Transmission Date: 20220720
  Serious: Yes (Death)
  Sender: FDA-Public Use
  Company Number: None

PATIENT
  Age: 43 Year
  Sex: Male

DRUGS (10)
  1. LORBRENA [Suspect]
     Active Substance: LORLATINIB
     Indication: Lung neoplasm malignant
     Dosage: FREQUENCY : DAILY;?
     Route: 048
     Dates: start: 20220121
  2. LORBRENA [Suspect]
     Active Substance: LORLATINIB
     Indication: Bronchial carcinoma
  3. XGEVA [Suspect]
     Active Substance: DENOSUMAB
     Indication: Bronchial carcinoma
     Dosage: OTHER FREQUENCY : EVRY 4 WEEKS;?
     Route: 058
  4. COLACE [Concomitant]
     Active Substance: DOCUSATE SODIUM
  5. ELIQUIS [Concomitant]
     Active Substance: APIXABAN
  6. MIRALAX [Concomitant]
     Active Substance: POLYETHYLENE GLYCOL 3350
  7. FENTANYL [Concomitant]
     Active Substance: FENTANYL
  8. OXYCODONE [Concomitant]
     Active Substance: OXYCODONE
  9. TUMS [Concomitant]
     Active Substance: CALCIUM CARBONATE
  10. ZOFRAN [Concomitant]
     Active Substance: ONDANSETRON HYDROCHLORIDE

REACTIONS (1)
  - Death [None]
